FAERS Safety Report 4547179-9 (Version None)
Quarter: 2005Q1

REPORT INFORMATION
  Report Type: 
  Country: None (occurrence: None)
  Receive Date: 20050107
  Receipt Date: 20041015
  Transmission Date: 20050727
  Serious: Yes (Hospitalization)
  Sender: FDA-Public Use
  Company Number: 200417951US

PATIENT
  Sex: Female
  Weight: 56.4 kg

DRUGS (13)
  1. KETEK [Suspect]
     Indication: BRONCHITIS
     Route: 048
     Dates: start: 20040907, end: 20040911
  2. MEDROL [Concomitant]
     Dosage: DOSE: UNK
  3. LISINOPRIL [Concomitant]
     Dosage: DOSE: UNK
  4. COMBIVENT [Concomitant]
     Dosage: DOSE: UNK
  5. ASPIRIN [Concomitant]
     Dosage: DOSE: UNK
  6. XANAX [Concomitant]
     Dosage: DOSE: UNK
  7. ZOLOFT [Concomitant]
     Dosage: DOSE: UNK
  8. XALATAN [Concomitant]
     Dosage: DOSE: UNK
  9. COLACE [Concomitant]
     Dosage: DOSE: UNK
  10. XOPENEX [Concomitant]
     Dosage: DOSE: UNK
  11. DURAGESIC [Concomitant]
     Dosage: DOSE: UNK
  12. PROTONIX [Concomitant]
     Dosage: DOSE: UNK
  13. OXYGEN [Concomitant]
     Dosage: DOSE: UNK

REACTIONS (5)
  - ABDOMINAL PAIN [None]
  - INFLUENZA LIKE ILLNESS [None]
  - NAUSEA [None]
  - RASH [None]
  - VOMITING [None]
